FAERS Safety Report 7377202-8 (Version None)
Quarter: 2011Q1

REPORT INFORMATION
  Report Type: 
  Country: None (occurrence: None)
  Receive Date: 20110328
  Receipt Date: 20110315
  Transmission Date: 20110831
  Serious: No
  Sender: FDA-Public Use
  Company Number: US-BIOGENIDEC-2011BI010080

PATIENT
  Sex: Female

DRUGS (2)
  1. AVONEX [Suspect]
     Indication: MULTIPLE SCLEROSIS
     Route: 030
     Dates: start: 20090508
  2. ANTIBIOTIC (NOS) [Concomitant]

REACTIONS (13)
  - DIARRHOEA [None]
  - DECREASED APPETITE [None]
  - ACNE [None]
  - INFLUENZA LIKE ILLNESS [None]
  - HEADACHE [None]
  - INJECTION SITE ERYTHEMA [None]
  - ADVERSE REACTION [None]
  - COGNITIVE DISORDER [None]
  - INJECTION SITE PRURITUS [None]
  - ANIMAL SCRATCH [None]
  - NAUSEA [None]
  - CHILLS [None]
  - CLOSTRIDIUM DIFFICILE COLITIS [None]
